FAERS Safety Report 5680132-0 (Version None)
Quarter: 2008Q1

REPORT INFORMATION
  Report Type: 
  Country: None (occurrence: None)
  Receive Date: 20080326
  Receipt Date: 20080128
  Transmission Date: 20080703
  Serious: Yes (Death)
  Sender: FDA-Public Use
  Company Number: US-TYCO HEALTHCARE/MALLINCKRODT-T200800455

PATIENT

DRUGS (1)
  1. OXYCODONE HCL [Suspect]
     Route: 051

REACTIONS (7)
  - AGGRESSION [None]
  - AGITATION [None]
  - CARDIAC ARREST [None]
  - CONFUSIONAL STATE [None]
  - HYPOTENSION [None]
  - RESPIRATORY ARREST [None]
  - UNRESPONSIVE TO STIMULI [None]
